FAERS Safety Report 12294666 (Version 1)
Quarter: 2016Q2

REPORT INFORMATION
  Report Type: Spontaneous
  Country: US (occurrence: None)
  Receive Date: 20160421
  Receipt Date: 20160421
  Transmission Date: 20160815
  Serious: No
  Sender: FDA-Public Use
  Company Number: None

PATIENT
  Age: 43 Year
  Sex: Female
  Weight: 87.09 kg

DRUGS (9)
  1. BACLOFEN. [Concomitant]
     Active Substance: BACLOFEN
  2. TRAZODONE [Concomitant]
     Active Substance: TRAZODONE HYDROCHLORIDE
  3. CALCIUM [Concomitant]
     Active Substance: CALCIUM
  4. WARFARIN [Concomitant]
     Active Substance: WARFARIN
  5. TOPIRIMATE [Concomitant]
  6. FISH OIL [Concomitant]
     Active Substance: FISH OIL
  7. TRAMADOL, 50 MG [Suspect]
     Active Substance: TRAMADOL
     Indication: PAIN
     Route: 048
  8. TOPIRIMATE, 100 MG [Suspect]
     Active Substance: TOPIRAMATE
     Indication: MIGRAINE
     Route: 048
  9. COLLAGEN [Concomitant]
     Active Substance: COLLAGEN

REACTIONS (1)
  - Serotonin syndrome [None]

NARRATIVE: CASE EVENT DATE: 20160419
